FAERS Safety Report 25026738 (Version 3)
Quarter: 2025Q1

REPORT INFORMATION
  Report Type: Spontaneous
  Country: US (occurrence: US)
  Receive Date: 20250301
  Receipt Date: 20250307
  Transmission Date: 20250409
  Serious: Yes (Other)
  Sender: SANOFI AVENTIS
  Company Number: US-SA-2025SA055151

PATIENT
  Age: 75 Year
  Sex: Female

DRUGS (2)
  1. KEVZARA [Suspect]
     Active Substance: SARILUMAB
     Indication: Rheumatoid arthritis
     Dosage: 200 MG, QOW
     Route: 058
     Dates: start: 202411
  2. PREDNISONE [Concomitant]
     Active Substance: PREDNISONE

REACTIONS (5)
  - Rheumatoid arthritis [Unknown]
  - Pain [Recovering/Resolving]
  - Malaise [Unknown]
  - Loss of personal independence in daily activities [Unknown]
  - Gait inability [Unknown]

NARRATIVE: CASE EVENT DATE: 20250101
